FAERS Safety Report 10562689 (Version 2)
Quarter: 2014Q4

REPORT INFORMATION
  Report Type: Spontaneous
  Country: US (occurrence: US)
  Receive Date: 20141104
  Receipt Date: 20141215
  Transmission Date: 20150529
  Serious: No
  Sender: FDA-Public Use
  Company Number: US-SHIRE-US201407171

PATIENT
  Age: 8 Year
  Sex: Male

DRUGS (2)
  1. VYVANSE [Suspect]
     Active Substance: LISDEXAMFETAMINE DIMESYLATE
     Dosage: 30 MG, 1X/DAY:QD
     Route: 048
     Dates: start: 20141015
  2. VYVANSE [Suspect]
     Active Substance: LISDEXAMFETAMINE DIMESYLATE
     Indication: ATTENTION DEFICIT/HYPERACTIVITY DISORDER
     Dosage: 20 MG, 1X/DAY:QD
     Route: 048
     Dates: start: 201407, end: 20141014

REACTIONS (8)
  - Condition aggravated [Not Recovered/Not Resolved]
  - Negativism [Not Recovered/Not Resolved]
  - Staring [Not Recovered/Not Resolved]
  - Agitation [Not Recovered/Not Resolved]
  - Anxiety [Not Recovered/Not Resolved]
  - Drug effect decreased [Not Recovered/Not Resolved]
  - Disturbance in social behaviour [Not Recovered/Not Resolved]
  - Oppositional defiant disorder [Not Recovered/Not Resolved]

NARRATIVE: CASE EVENT DATE: 201410
